APPROVED DRUG PRODUCT: ALBUTEROL SULFATE
Active Ingredient: ALBUTEROL SULFATE
Strength: EQ 2MG BASE/5ML
Dosage Form/Route: SYRUP;ORAL
Application: A075262 | Product #001
Applicant: ACTAVIS MID ATLANTIC LLC
Approved: Mar 30, 1999 | RLD: No | RS: No | Type: DISCN